FAERS Safety Report 5982703-0 (Version None)
Quarter: 2008Q4

REPORT INFORMATION
  Report Type: 
  Country: None (occurrence: None)
  Receive Date: 20081205
  Receipt Date: 20081205
  Transmission Date: 20090506
  Serious: Yes (Other)
  Sender: FDA-Public Use
  Company Number: None

PATIENT
  Age: 64 Year
  Sex: Female
  Weight: 77.1115 kg

DRUGS (2)
  1. DOXORUBICIN HCL [Suspect]
     Indication: BREAST CANCER
     Dosage: 110MG EVERY 21 DAYS IV DRIP
     Route: 041
     Dates: start: 20081001, end: 20081203
  2. DOXORUBICIN HCL [Suspect]

REACTIONS (4)
  - BURNING SENSATION [None]
  - OROPHARYNGEAL PAIN [None]
  - PARAESTHESIA [None]
  - TONGUE DISORDER [None]
